FAERS Safety Report 17067654 (Version 1)
Quarter: 2019Q4

REPORT INFORMATION
  Report Type: Spontaneous
  Country: US (occurrence: US)
  Receive Date: 20191122
  Receipt Date: 20191122
  Transmission Date: 20200122
  Serious: No
  Sender: FDA-Public Use
  Company Number: US-ARRAY-2019-06712

PATIENT

DRUGS (7)
  1. BRAFTOVI [Suspect]
     Active Substance: ENCORAFENIB
     Indication: COLON CANCER METASTATIC
     Dosage: 4 DF, QD
     Dates: start: 2019
  2. CETUXIMAB. [Concomitant]
     Active Substance: CETUXIMAB
     Indication: COLON CANCER
     Dosage: UNK, EVERY OTHER WEEK
     Dates: start: 20191106
  3. MORPHINE [Concomitant]
     Active Substance: MORPHINE
     Indication: BACK PAIN
     Dosage: 10 MG, BID
     Dates: start: 20191024, end: 20191106
  4. OXYCODONE [Concomitant]
     Active Substance: OXYCODONE
     Indication: BACK PAIN
     Dosage: 5 MG, Q4H PRN
     Route: 048
     Dates: start: 20191024
  5. MEKTOVI [Suspect]
     Active Substance: BINIMETINIB
     Indication: COLON CANCER METASTATIC
     Dosage: 3 DF, BID
     Dates: start: 2019
  6. ZOFRAN [Concomitant]
     Active Substance: ONDANSETRON HYDROCHLORIDE
     Indication: NAUSEA
     Dosage: 5 MG, PRN
     Dates: start: 20191024
  7. LORAZEPAM. [Concomitant]
     Active Substance: LORAZEPAM
     Indication: NAUSEA
     Dosage: 10 MG,BID PRN
     Route: 048
     Dates: start: 20191024

REACTIONS (4)
  - Vomiting [Not Recovered/Not Resolved]
  - Product use in unapproved indication [Unknown]
  - Urticaria [Not Recovered/Not Resolved]
  - Nausea [Not Recovered/Not Resolved]

NARRATIVE: CASE EVENT DATE: 2019
